FAERS Safety Report 8069022-6 (Version None)
Quarter: 2011Q4

REPORT INFORMATION
  Report Type: 
  Country: None (occurrence: None)
  Receive Date: 20111221
  Receipt Date: 20101101
  Transmission Date: 20120403
  Serious: Yes (Other)
  Sender: FDA-Public Use
  Company Number: PHHY2010US73712

PATIENT
  Age: 18 Year
  Sex: Male
  Weight: 80.2 kg

DRUGS (15)
  1. EXJADE [Suspect]
     Indication: IRON OVERLOAD
     Dosage: 1500 MG, QD, ORAL
     Route: 048
     Dates: end: 20100901
  2. CALCITRIOL [Concomitant]
  3. CALCIUM CARBONATE [Concomitant]
  4. CELEXA [Concomitant]
  5. STRATTERA [Concomitant]
  6. CELLCEPT [Concomitant]
  7. INSULIN LISPRO (INSULIN LISPRO) [Concomitant]
  8. PRILOSEC [Concomitant]
  9. CARVEDILOL (CARVEDIOL) [Concomitant]
  10. PRAVASTATIN (PRAVASTATIN) [Concomitant]
  11. MEPRON [Concomitant]
  12. FLUDROCORTISONE ACETATE [Concomitant]
  13. LANTUS [Concomitant]
  14. DIFLUCAN [Concomitant]
  15. RITALIN [Concomitant]

REACTIONS (2)
  - BLOOD CREATININE INCREASED [None]
  - RENAL IMPAIRMENT [None]
